FAERS Safety Report 10121288 (Version 1)
Quarter: 2014Q2

REPORT INFORMATION
  Report Type: Report from Study
  Country: BR (occurrence: BR)
  Receive Date: 20140425
  Receipt Date: 20140425
  Transmission Date: 20141212
  Serious: Yes (Other)
  Sender: FDA-Public Use
  Company Number: PHHY2014BR050543

PATIENT
  Sex: Female

DRUGS (2)
  1. ACLASTA [Suspect]
     Indication: OSTEOPOROSIS
     Dosage: UNK UKN, ONCE, ANNUALLY
     Route: 042
     Dates: start: 2012
  2. CALCIUM [Concomitant]
     Indication: BONE DISORDER
     Dosage: 2 DF, DAILY

REACTIONS (5)
  - Upper limb fracture [Recovering/Resolving]
  - Osteopenia [Unknown]
  - Fall [Recovering/Resolving]
  - Agitation [Unknown]
  - Arthralgia [Recovering/Resolving]
